FAERS Safety Report 5585276-X (Version None)
Quarter: 2008Q1

REPORT INFORMATION
  Report Type: 
  Country: None (occurrence: None)
  Receive Date: 20080108
  Receipt Date: 20080108
  Transmission Date: 20080703
  Serious: Yes (Other)
  Sender: FDA-Public Use
  Company Number: None

PATIENT
  Age: 78 Year
  Sex: Male

DRUGS (14)
  1. LEVOFLOXACIN [Suspect]
     Dates: start: 20061114, end: 20061124
  2. AUGMENTIN '250' [Suspect]
     Dates: start: 20061107, end: 20061117
  3. LISINOPRIL [Concomitant]
  4. FELODIPINE [Concomitant]
  5. AVODART [Concomitant]
  6. ATENOLOL [Concomitant]
  7. AMOXICILLIN [Concomitant]
  8. DITROPAN XL [Concomitant]
  9. BENADRYL [Concomitant]
  10. ASPIRIN [Concomitant]
  11. ASULFIDINE [Concomitant]
  12. FLUTICASONE PROPIONATE [Concomitant]
  13. HERBAL AND VITAMIN SUPPLEMENTS [Concomitant]
  14. METHYLSULFONAL SULPHUR [Concomitant]

REACTIONS (7)
  - DEHYDRATION [None]
  - HEPATITIS CHOLESTATIC [None]
  - HEPATOTOXICITY [None]
  - LIVER INJURY [None]
  - SYNCOPE [None]
  - UNEVALUABLE EVENT [None]
  - VISUAL DISTURBANCE [None]
